FAERS Safety Report 9243270 (Version 1)
Quarter: 2013Q2

REPORT INFORMATION
  Report Type: Spontaneous
  Country: PH (occurrence: PH)
  Receive Date: 20130419
  Receipt Date: 20130419
  Transmission Date: 20140414
  Serious: Yes (Death)
  Sender: FDA-Public Use
  Company Number: PH-009507513-1304PHL008411

PATIENT
  Age: 51 Year
  Sex: Male

DRUGS (1)
  1. JANUVIA [Suspect]
     Dosage: 25 MG, ONE TABLET, ONCE A DAY
     Route: 048
     Dates: start: 201209

REACTIONS (1)
  - Disease complication [Fatal]
